FAERS Safety Report 9123260 (Version 1)
Quarter: 2013Q1

REPORT INFORMATION
  Report Type: Report from Study
  Country: JP (occurrence: JP)
  Receive Date: 20130115
  Receipt Date: 20130115
  Transmission Date: 20140127
  Serious: Yes (Hospitalization)
  Sender: FDA-Public Use
  Company Number: JP-PFIZER INC-2013007571

PATIENT
  Sex: Male
  Weight: 49 kg

DRUGS (13)
  1. REVATIO [Suspect]
     Indication: PULMONARY HYPERTENSION
     Dosage: 20 MG, 1X/DAY
     Route: 048
     Dates: start: 20121101, end: 20121104
  2. REVATIO [Suspect]
     Dosage: 20 MG, 2X/DAY
     Route: 048
     Dates: start: 20121105, end: 20121107
  3. TRACLEER [Concomitant]
     Indication: PULMONARY HYPERTENSION
     Dosage: UNK
     Route: 048
     Dates: start: 20120910, end: 20120923
  4. TRACLEER [Concomitant]
     Dosage: UNK
     Route: 048
     Dates: start: 20121005
  5. PREDONINE [Concomitant]
     Dosage: UNK
     Route: 048
  6. NOVORAPID [Concomitant]
     Dosage: UNK
     Route: 058
     Dates: start: 20121102
  7. BONALON [Concomitant]
     Indication: PROPHYLAXIS
     Dosage: UNK
     Route: 048
  8. TAKEPRON [Concomitant]
     Indication: PROPHYLAXIS
     Dosage: UNK
     Route: 048
  9. LIMAPROST ALFADEX [Concomitant]
     Dosage: UNK
     Route: 048
  10. MEDICON [Concomitant]
     Dosage: UNK
     Route: 048
  11. ACARBOSE [Concomitant]
     Dosage: UNK
     Route: 048
  12. GLACTIV [Concomitant]
     Dosage: UNK
     Route: 048
  13. EDIROL [Concomitant]
     Indication: PROPHYLAXIS
     Dosage: UNK
     Route: 048

REACTIONS (1)
  - Blood pressure decreased [Recovering/Resolving]
